FAERS Safety Report 22015165 (Version 2)
Quarter: 2023Q1

REPORT INFORMATION
  Report Type: Other
  Country: US (occurrence: None)
  Receive Date: 20230221
  Receipt Date: 20230302
  Transmission Date: 20230418
  Serious: Yes (Life-Threatening)
  Sender: FDA-Public Use
  Company Number: US-ROCHE-3289351

PATIENT
  Age: 50 Year
  Sex: Female

DRUGS (16)
  1. XOLAIR [Suspect]
     Active Substance: OMALIZUMAB
     Indication: Idiopathic urticaria
     Route: 058
  2. XOLAIR [Suspect]
     Active Substance: OMALIZUMAB
  3. XOLAIR [Suspect]
     Active Substance: OMALIZUMAB
  4. XOLAIR [Suspect]
     Active Substance: OMALIZUMAB
     Route: 058
  5. XOLAIR [Suspect]
     Active Substance: OMALIZUMAB
  6. XOLAIR [Suspect]
     Active Substance: OMALIZUMAB
  7. FAMOTIDINE [Concomitant]
     Active Substance: FAMOTIDINE
  8. LEVOCETIRIZINE [Concomitant]
     Active Substance: LEVOCETIRIZINE
  9. VICTOZA [Concomitant]
     Active Substance: LIRAGLUTIDE
  10. ATORVASTATIN [Concomitant]
     Active Substance: ATORVASTATIN
  11. LEVOTHYROXINE [Concomitant]
     Active Substance: LEVOTHYROXINE
  12. LIOTHYRONINE [Concomitant]
     Active Substance: LIOTHYRONINE
  13. EPINEPHRINE [Concomitant]
     Active Substance: EPINEPHRINE
  14. HYDROXYZINE HYDROCHLORIDE [Concomitant]
     Active Substance: HYDROXYZINE HYDROCHLORIDE
  15. XYZAL [Concomitant]
     Active Substance: LEVOCETIRIZINE DIHYDROCHLORIDE
  16. METFORMIN [Concomitant]
     Active Substance: METFORMIN HYDROCHLORIDE

REACTIONS (3)
  - Anaphylactic reaction [Unknown]
  - Pruritus [Unknown]
  - Drug ineffective [Unknown]
